FAERS Safety Report 8875781 (Version 1)
Quarter: 2012Q4

REPORT INFORMATION
  Report Type: 
  Country: US (occurrence: US)
  Receive Date: 20121030
  Receipt Date: 20121030
  Transmission Date: 20130627
  Serious: Yes (Hospitalization)
  Sender: FDA-Public Use
  Company Number: US-GLAXOSMITHKLINE-A0833080A

PATIENT
  Age: 60 Year
  Sex: Male

DRUGS (2)
  1. AVANDIA [Suspect]
     Indication: DIABETES MELLITUS
     Dosage: 4MG Per day
     Route: 048
     Dates: start: 2001, end: 2007
  2. ROSIGLITAZONE [Suspect]
     Indication: DIABETES MELLITUS
     Dosage: 4MG Unknown
     Route: 065
     Dates: start: 20000912, end: 20011119

REACTIONS (9)
  - Myocardial infarction [Unknown]
  - Renal failure [Unknown]
  - Cardiac failure congestive [Unknown]
  - Pulmonary oedema [Unknown]
  - Congestive cardiomyopathy [Unknown]
  - Ventricular arrhythmia [Unknown]
  - Cardiovascular disorder [Unknown]
  - Hypertension [Unknown]
  - Coronary artery disease [Unknown]
